FAERS Safety Report 5338265-4 (Version None)
Quarter: 2007Q2

REPORT INFORMATION
  Report Type: 
  Country: None (occurrence: None)
  Receive Date: 20070530
  Receipt Date: 20061129
  Transmission Date: 20071010
  Serious: Yes (Hospitalization)
  Sender: FDA-Public Use
  Company Number: A0629790A

PATIENT
  Age: 67 Year
  Sex: Female

DRUGS (2)
  1. LANOXICAPS [Suspect]
     Indication: DRUG USE FOR UNKNOWN INDICATION
  2. DIGITEK [Suspect]

REACTIONS (3)
  - CONFUSIONAL STATE [None]
  - MEDICATION ERROR [None]
  - THERAPEUTIC AGENT TOXICITY [None]
